FAERS Safety Report 10288333 (Version 3)
Quarter: 2014Q3

REPORT INFORMATION
  Report Type: Report from Study
  Country: JP (occurrence: JP)
  Receive Date: 20140709
  Receipt Date: 20140916
  Transmission Date: 20150326
  Serious: Yes (Death, Life-Threatening)
  Sender: FDA-Public Use
  Company Number: JP-PFIZER INC-2014078011

PATIENT
  Age: 3 Month
  Sex: Female
  Weight: 3 kg

DRUGS (7)
  1. LASIX [Concomitant]
     Active Substance: FUROSEMIDE
     Indication: CARDIAC FAILURE
     Dosage: UNK
     Route: 048
     Dates: start: 20090121, end: 20090504
  2. ERYTHROCIN [Concomitant]
     Active Substance: ERYTHROMYCIN LACTOBIONATE
     Indication: BRONCHITIS
     Dosage: UNK
     Route: 048
     Dates: start: 20090412, end: 20090504
  3. ALDACTONE [Concomitant]
     Active Substance: SPIRONOLACTONE
     Indication: CARDIAC FAILURE
     Dosage: UNK
     Route: 048
     Dates: start: 20090121, end: 20090504
  4. WARFARIN [Concomitant]
     Active Substance: WARFARIN
     Indication: THROMBOSIS
     Dosage: UNK
     Route: 048
     Dates: start: 20090410, end: 20090504
  5. SILDENAFIL CITRATE. [Suspect]
     Active Substance: SILDENAFIL CITRATE
     Indication: PULMONARY ARTERIAL HYPERTENSION
     Dosage: 0.6 MG, 3X/DAY
     Route: 048
     Dates: start: 20090502
  6. ASPIRIN ^BAYER^ [Concomitant]
     Active Substance: ASPIRIN
     Indication: THROMBOSIS
     Dosage: UNK
     Route: 048
     Dates: start: 20090409, end: 20090504
  7. PHENOBAL [Concomitant]
     Active Substance: PHENOBARBITAL
     Indication: SEDATION
     Dosage: UNK
     Route: 048
     Dates: start: 20090409, end: 20090504

REACTIONS (4)
  - Multi-organ failure [Not Recovered/Not Resolved]
  - Disseminated intravascular coagulation [Not Recovered/Not Resolved]
  - Cardiac arrest [Fatal]
  - Hypoxia [Fatal]

NARRATIVE: CASE EVENT DATE: 20090504
